FAERS Safety Report 20118783 (Version 2)
Quarter: 2021Q4

REPORT INFORMATION
  Report Type: Spontaneous
  Country: US (occurrence: US)
  Receive Date: 20211126
  Receipt Date: 20211222
  Transmission Date: 20220303
  Serious: No
  Sender: FDA-Public Use
  Company Number: US-LUPIN PHARMACEUTICALS INC.-2021-22776

PATIENT
  Age: 58 Year
  Sex: Male

DRUGS (1)
  1. ALBUTEROL SULFATE [Suspect]
     Active Substance: ALBUTEROL SULFATE
     Indication: Chronic obstructive pulmonary disease
     Dosage: UNK UNK, PRN (1-2 PUFFS BY MOUTH Q 4-6 HOURS AS NEEDED)
     Dates: start: 202111

REACTIONS (2)
  - Device malfunction [Unknown]
  - No adverse event [Unknown]
